FAERS Safety Report 8810138 (Version 2)
Quarter: 2013Q2

REPORT INFORMATION
  Report Type: Spontaneous
  Country: IT (occurrence: IT)
  Receive Date: 20120926
  Receipt Date: 20130422
  Transmission Date: 20140414
  Serious: Yes (Other)
  Sender: FDA-Public Use
  Company Number: IT-ROCHE-1136242

PATIENT
  Age: 35 Year
  Sex: Female

DRUGS (7)
  1. MABTHERA [Suspect]
     Indication: RHEUMATOID ARTHRITIS
     Route: 042
     Dates: start: 20100101, end: 20120518
  2. DELTACORTENE [Concomitant]
  3. ARAVA [Concomitant]
  4. LANSOX [Concomitant]
  5. URBASON [Concomitant]
     Indication: PREMEDICATION
  6. TRIMETON [Concomitant]
     Indication: PREMEDICATION
  7. TACHIPIRINA [Concomitant]
     Indication: PREMEDICATION

REACTIONS (2)
  - Laryngospasm [Recovered/Resolved]
  - Pruritus [Recovered/Resolved]
